FAERS Safety Report 7284107-X (Version None)
Quarter: 2011Q1

REPORT INFORMATION
  Report Type: 
  Country: None (occurrence: None)
  Receive Date: 20110209
  Receipt Date: 20100426
  Transmission Date: 20110831
  Serious: No
  Sender: FDA-Public Use
  Company Number: US-PFIZER INC-2010055480

PATIENT
  Sex: Male

DRUGS (2)
  1. GEODON [Suspect]
     Dosage: 80 MG, 2X/DAY
  2. GEODON [Suspect]
     Dosage: 60 MG, 1X/DAY

REACTIONS (1)
  - SOMNOLENCE [None]
